FAERS Safety Report 19693377 (Version 1)
Quarter: 2021Q3

REPORT INFORMATION
  Report Type: Spontaneous
  Country: US (occurrence: US)
  Receive Date: 20210812
  Receipt Date: 20210812
  Transmission Date: 20211014
  Serious: No
  Sender: FDA-Public Use
  Company Number: US-SA-2021SA264943

PATIENT
  Age: 61 Year
  Sex: Female

DRUGS (11)
  1. CRESTOR [Concomitant]
     Active Substance: ROSUVASTATIN CALCIUM
  2. VITAMIN C [Concomitant]
     Active Substance: ASCORBIC ACID
  3. BENAZEPRIL HCL [Concomitant]
     Active Substance: BENAZEPRIL HYDROCHLORIDE
  4. FISH OIL [Concomitant]
     Active Substance: FISH OIL
  5. MULTIVITAMIN + MINERAL [Concomitant]
     Active Substance: MINERALS\VITAMINS
  6. AUBAGIO [Suspect]
     Active Substance: TERIFLUNOMIDE
     Indication: HYPERTENSION
     Dosage: 14 MG, QD
     Route: 048
     Dates: start: 20200317
  7. AUBAGIO [Suspect]
     Active Substance: TERIFLUNOMIDE
     Indication: MULTIPLE SCLEROSIS
  8. ARMODAFINIL. [Concomitant]
     Active Substance: ARMODAFINIL
  9. AMLODIPINE BESYLATE. [Concomitant]
     Active Substance: AMLODIPINE BESYLATE
  10. ESTRADIOL. [Concomitant]
     Active Substance: ESTRADIOL
  11. ZANTAC [Concomitant]
     Active Substance: RANITIDINE HYDROCHLORIDE

REACTIONS (2)
  - Migraine [Unknown]
  - Product use in unapproved indication [Unknown]

NARRATIVE: CASE EVENT DATE: 20200317
